FAERS Safety Report 12273333 (Version 6)
Quarter: 2016Q4

REPORT INFORMATION
  Report Type: Spontaneous
  Country: TW (occurrence: TW)
  Receive Date: 20160415
  Receipt Date: 20161020
  Transmission Date: 20170207
  Serious: Yes (Hospitalization)
  Sender: FDA-Public Use
  Company Number: PHHY2016TW050216

PATIENT
  Age: 23 Year
  Sex: Male

DRUGS (5)
  1. COLCHICINE. [Interacting]
     Active Substance: COLCHICINE
     Indication: BEHCET^S SYNDROME
     Route: 048
  2. SANDIMMUNE NEORAL [Interacting]
     Active Substance: CYCLOSPORINE
     Dosage: 200 MG, UNK
     Route: 048
     Dates: end: 201604
  3. IMURAN [Concomitant]
     Active Substance: AZATHIOPRINE
     Indication: PRODUCT USED FOR UNKNOWN INDICATION
     Dosage: UNK
     Route: 065
  4. VITAMIN B12 [Concomitant]
     Active Substance: CYANOCOBALAMIN
     Indication: PRODUCT USED FOR UNKNOWN INDICATION
     Route: 065
  5. SANDIMMUNE NEORAL [Suspect]
     Active Substance: CYCLOSPORINE
     Indication: BEHCET^S SYNDROME
     Dosage: 100 MG, UNK
     Route: 048

REACTIONS (12)
  - Abnormal behaviour [Recovered/Resolved]
  - Drug interaction [Unknown]
  - Muscular weakness [Recovering/Resolving]
  - Pyrexia [Unknown]
  - Visual acuity reduced [Recovering/Resolving]
  - Headache [Unknown]
  - Amnesia [Recovering/Resolving]
  - Product use issue [Unknown]
  - Slow response to stimuli [Recovering/Resolving]
  - Neuropathy peripheral [Recovering/Resolving]
  - Myopathy [Recovering/Resolving]
  - Gait disturbance [Recovering/Resolving]
